FAERS Safety Report 15809955 (Version 1)
Quarter: 2019Q1

REPORT INFORMATION
  Report Type: Spontaneous
  Country: US (occurrence: US)
  Receive Date: 20190111
  Receipt Date: 20190111
  Transmission Date: 20190417
  Serious: No
  Sender: FDA-Public Use
  Company Number: US-ROCHE-2111009

PATIENT
  Age: 59 Year
  Sex: Female
  Weight: 67.19 kg

DRUGS (3)
  1. PEPCID (UNITED STATES) [Concomitant]
  2. RITUXAN [Suspect]
     Active Substance: RITUXIMAB
     Indication: SPLENIC MARGINAL ZONE LYMPHOMA
     Dosage: ONGOING: NO
     Route: 065
     Dates: start: 201707
  3. RITUXAN [Suspect]
     Active Substance: RITUXIMAB
     Dosage: ONGOING: YES
     Route: 065
     Dates: start: 20180412

REACTIONS (6)
  - Flushing [Recovered/Resolved]
  - Body temperature abnormal [Recovered/Resolved]
  - Victim of crime [Recovered/Resolved]
  - Heart rate increased [Recovered/Resolved]
  - Chills [Recovered/Resolved]
  - Feeling abnormal [Recovered/Resolved]

NARRATIVE: CASE EVENT DATE: 20180412
